FAERS Safety Report 13782269 (Version 1)
Quarter: 2017Q3

REPORT INFORMATION
  Report Type: Spontaneous
  Country: US (occurrence: US)
  Receive Date: 20170724
  Receipt Date: 20170724
  Transmission Date: 20171127
  Serious: No
  Sender: FDA-Public Use
  Company Number: US-HORIZON-KRY-0066-2017

PATIENT
  Age: 41 Year
  Sex: Male
  Weight: 104 kg

DRUGS (7)
  1. METOPROLOL. [Concomitant]
     Active Substance: METOPROLOL
     Indication: HYPERTENSION
     Dosage: 50 MG DAILY
  2. TYLENOL [Concomitant]
     Active Substance: ACETAMINOPHEN
     Dosage: 1000 MG
  3. KRYSTEXXA [Suspect]
     Active Substance: PEGLOTICASE
     Indication: GOUT
     Dosage: 8 MG I.V. EVERY 2 WEEKS
     Dates: start: 201612
  4. LOSARTAN POTASSIUM. [Concomitant]
     Active Substance: LOSARTAN POTASSIUM
     Indication: HYPERTENSION
     Dosage: 100 MG DAILY
  5. TRIAMTERENE HCP [Concomitant]
     Indication: HYPERTENSION
     Dosage: 37.5 - 25 MG, DAILY
  6. METIGARE [Concomitant]
     Indication: GOUT
     Dosage: 0.6 MG TWICE DAILY
  7. BENADRYL [Concomitant]
     Active Substance: DIPHENHYDRAMINE HYDROCHLORIDE

REACTIONS (2)
  - Drug dose omission [Unknown]
  - Blood uric acid increased [Unknown]
